FAERS Safety Report 9434650 (Version 2)
Quarter: 2013Q3

REPORT INFORMATION
  Report Type: Report from Study
  Country: FR (occurrence: FR)
  Receive Date: 20130801
  Receipt Date: 20130806
  Transmission Date: 20140515
  Serious: Yes (Hospitalization)
  Sender: FDA-Public Use
  Company Number: FR-009507513-1307FRA014793

PATIENT
  Age: 44 Year
  Sex: Male

DRUGS (6)
  1. VICTRELIS [Suspect]
     Indication: CHRONIC HEPATITIS C
     Dosage: 2400 MG, QD
     Route: 048
     Dates: start: 20121109, end: 20130620
  2. RIBAVIRIN [Suspect]
     Indication: CHRONIC HEPATITIS C
     Dosage: 1200 MG, QD
     Route: 048
     Dates: start: 20121012, end: 20130620
  3. PEGINTERFERON ALFA-2A [Suspect]
     Indication: CHRONIC HEPATITIS C
     Dosage: 180 MICROGRAM, QW
     Route: 058
     Dates: start: 20121012, end: 20130614
  4. TRUVADA [Concomitant]
     Indication: HIV INFECTION
     Dosage: 1 DF, QD
     Dates: start: 20120919
  5. PREZISTA [Concomitant]
     Indication: HIV INFECTION
  6. NORVIR [Concomitant]
     Indication: HIV INFECTION
     Dosage: UNK
     Dates: start: 20120919

REACTIONS (2)
  - Hyperthermia [Recovered/Resolved]
  - Cough [Recovered/Resolved]
